FAERS Safety Report 9417369 (Version 1)
Quarter: 2013Q3

REPORT INFORMATION
  Report Type: Spontaneous
  Country: US (occurrence: US)
  Receive Date: 20130724
  Receipt Date: 20130724
  Transmission Date: 20140515
  Serious: No
  Sender: FDA-Public Use
  Company Number: US-BRISTOL-MYERS SQUIBB COMPANY-18849265

PATIENT
  Age: 71 Year
  Sex: Male

DRUGS (5)
  1. ELIQUIS [Suspect]
  2. MULTAQ [Concomitant]
  3. FLONASE [Concomitant]
  4. VALIUM [Concomitant]
  5. VITAMINS [Concomitant]

REACTIONS (2)
  - Dizziness [Recovered/Resolved]
  - Headache [Recovered/Resolved]
